FAERS Safety Report 22645704 (Version 1)
Quarter: 2023Q2

REPORT INFORMATION
  Report Type: Spontaneous
  Country: US (occurrence: US)
  Receive Date: 20230627
  Receipt Date: 20230627
  Transmission Date: 20230721
  Serious: No
  Sender: FDA-Public Use
  Company Number: US-PFIZER INC-PV202300110193

PATIENT
  Age: 70 Year
  Sex: Female

DRUGS (1)
  1. NURTEC ODT [Suspect]
     Active Substance: RIMEGEPANT SULFATE
     Indication: Migraine
     Dosage: 75 MG, 1X/DAY (ONCE A DAY AS NEEDED. MAX 1 TABLET PER 24 HOURS)
     Route: 048
     Dates: start: 20230621

REACTIONS (4)
  - Electric shock sensation [Not Recovered/Not Resolved]
  - Tinnitus [Not Recovered/Not Resolved]
  - Photosensitivity reaction [Not Recovered/Not Resolved]
  - Drug ineffective [Not Recovered/Not Resolved]

NARRATIVE: CASE EVENT DATE: 20230601
